FAERS Safety Report 4425203-1 (Version None)
Quarter: 2004Q3

REPORT INFORMATION
  Report Type: 
  Country: None (occurrence: None)
  Receive Date: 20040809
  Receipt Date: 20040805
  Transmission Date: 20050211
  Serious: Yes (Death, Hospitalization)
  Sender: FDA-Public Use
  Company Number: 2004-06-1393

PATIENT
  Age: 49 Year
  Sex: Male
  Weight: 84.8226 kg

DRUGS (5)
  1. PEG-INTRON [Suspect]
     Indication: HEPATITIS C
     Dosage: 160 MCG QWK SUBCUTANEOUS
     Route: 058
     Dates: start: 20030908
  2. REBETOL [Suspect]
     Indication: HEPATITIS C
     Dosage: 1000 MG QD ORAL
     Route: 048
     Dates: start: 20030908
  3. ZOLOFT [Concomitant]
  4. NEURONTIN [Concomitant]
  5. ALDACTONE [Concomitant]

REACTIONS (5)
  - CARDIAC ARREST [None]
  - HAEMOGLOBIN DECREASED [None]
  - HEPATIC FAILURE [None]
  - MULTI-ORGAN FAILURE [None]
  - PANCREATITIS [None]
